FAERS Safety Report 11847642 (Version 1)
Quarter: 2015Q4

REPORT INFORMATION
  Report Type: Spontaneous
  Country: US (occurrence: US)
  Receive Date: 20151217
  Receipt Date: 20151217
  Transmission Date: 20160305
  Serious: Yes (Hospitalization, Other)
  Sender: FDA-Public Use
  Company Number: US-NAPPMUNDI-USA-2015-0124411

PATIENT
  Age: 61 Year
  Sex: Male
  Weight: 90.25 kg

DRUGS (3)
  1. DILAUDID [Suspect]
     Active Substance: HYDROMORPHONE HYDROCHLORIDE
     Indication: PRODUCT USE ISSUE
     Route: 065
  2. BUPROPION HCL [Suspect]
     Active Substance: BUPROPION HYDROCHLORIDE
     Indication: WEIGHT CONTROL
     Dosage: 8 MG, UNK
     Route: 065
     Dates: start: 20150515, end: 20150517
  3. NALTREXONE HCL [Suspect]
     Active Substance: NALTREXONE HYDROCHLORIDE
     Indication: WEIGHT CONTROL
     Dosage: 90 MG, UNK
     Route: 065
     Dates: start: 20150515, end: 20150517

REACTIONS (3)
  - Contraindicated drug administered [Recovered/Resolved]
  - Respiratory distress [Recovered/Resolved]
  - Drug withdrawal syndrome [Recovered/Resolved]

NARRATIVE: CASE EVENT DATE: 20150517
